FAERS Safety Report 4293321-7 (Version None)
Quarter: 2004Q1

REPORT INFORMATION
  Report Type: 
  Country: None (occurrence: None)
  Receive Date: 20040126
  Receipt Date: 20031119
  Transmission Date: 20041129
  Serious: No
  Sender: FDA-Public Use
  Company Number: USA031151555

PATIENT
  Age: 54 Year
  Sex: Female

DRUGS (8)
  1. FORTEO [Suspect]
     Indication: OSTEOPOROSIS
     Dates: start: 20030619
  2. GLUCOSAMINE CHONDROITIN [Concomitant]
  3. CORTEF [Concomitant]
  4. LEVOXYL [Concomitant]
  5. PRAVACHOL [Concomitant]
  6. NAPROXYN EC (NAPROXEN) [Concomitant]
  7. DOSITINEX (CABERGOLINE) [Concomitant]
  8. ASPIRIN [Concomitant]

REACTIONS (2)
  - CARDIAC DISORDER [None]
  - DYSPNOEA [None]
